FAERS Safety Report 7810391-7 (Version None)
Quarter: 2011Q4

REPORT INFORMATION
  Report Type: 
  Country: None (occurrence: None)
  Receive Date: 20111012
  Receipt Date: 20111005
  Transmission Date: 20120403
  Serious: Yes (Other)
  Sender: FDA-Public Use
  Company Number: JP-ABBOTT-11P-087-0861035-00

PATIENT
  Sex: Male

DRUGS (7)
  1. TULOBUTEROL [Concomitant]
     Indication: BRONCHITIS
     Dosage: 1 MG DAILY
     Route: 062
     Dates: start: 20110909, end: 20110914
  2. CLARITHROMYCIN [Suspect]
     Dosage: 400 MG DAILY
     Dates: start: 20110909, end: 20110914
  3. CLARITHROMYCIN [Suspect]
     Indication: BRONCHITIS
     Dosage: 400 MG DAILY
     Route: 048
     Dates: start: 20110101, end: 20110101
  4. AMLODIPINE BESYLATE [Concomitant]
     Indication: HYPERTENSION
     Dosage: 5 MG DAILY
     Route: 048
     Dates: start: 20050105, end: 20110914
  5. HERBAL MEDICINE (KAKKONTO) [Concomitant]
     Indication: BRONCHITIS
     Route: 048
     Dates: start: 20110909, end: 20110914
  6. AMBROXOL HYDROCHLORIDE [Concomitant]
     Indication: BRONCHITIS
     Dosage: 15 MG DAILY
     Route: 048
     Dates: start: 20110909, end: 20110914
  7. CANDESARTAN CILEXETIL [Concomitant]
     Indication: HYPERTENSION
     Dosage: 2 MG DAILY
     Route: 048
     Dates: start: 20050105, end: 20110914

REACTIONS (1)
  - HEPATIC FUNCTION ABNORMAL [None]
